FAERS Safety Report 9447378 (Version 1)
Quarter: 2013Q3

REPORT INFORMATION
  Report Type: Spontaneous
  Country: US (occurrence: US)
  Receive Date: 20130808
  Receipt Date: 20130808
  Transmission Date: 20140515
  Serious: Yes (Hospitalization)
  Sender: FDA-Public Use
  Company Number: US-ROCHE-1256968

PATIENT
  Sex: Female

DRUGS (3)
  1. KADCYLA [Suspect]
     Indication: BREAST CANCER
     Route: 065
     Dates: start: 20130712
  2. HERCEPTIN [Suspect]
     Indication: PRODUCT USED FOR UNKNOWN INDICATION
     Route: 065
  3. FUROSEMIDE [Concomitant]

REACTIONS (5)
  - Pneumonia [Unknown]
  - Respiratory disorder [Unknown]
  - Cellulitis [Unknown]
  - Pulmonary oedema [Unknown]
  - Disease progression [Not Recovered/Not Resolved]
